FAERS Safety Report 5904229-2 (Version None)
Quarter: 2008Q3

REPORT INFORMATION
  Report Type: 
  Country: None (occurrence: None)
  Receive Date: 20080909
  Receipt Date: 20080211
  Transmission Date: 20090109
  Serious: No
  Sender: FDA-Public Use
  Company Number: 163-20785-07111235

PATIENT
  Age: 76 Year
  Sex: Male
  Weight: 83.9154 kg

DRUGS (14)
  1. THALOMID [Suspect]
     Indication: MULTIPLE MYELOMA
     Dosage: 200 MG, QD, ORAL ; 100 MG, QD, ORAL
     Route: 048
     Dates: start: 20070910, end: 20071101
  2. THALOMID [Suspect]
     Indication: MULTIPLE MYELOMA
     Dosage: 200 MG, QD, ORAL ; 100 MG, QD, ORAL
     Route: 048
     Dates: start: 20071120
  3. DEXAMETHASONE TAB [Concomitant]
  4. TERAZOSIN HCL [Concomitant]
  5. OMEPRAZOLE [Concomitant]
  6. NITRO PATCH (GLYCERYL TRINITRATE) (POULTICE OR PATCH) [Concomitant]
  7. METOPROLOL TARTRATE [Concomitant]
  8. PLAVIX [Concomitant]
  9. NIACIN [Concomitant]
  10. ASPIRIN [Concomitant]
  11. CALCIUM (CALCIUM) [Concomitant]
  12. VITAMIN D [Concomitant]
  13. TRAMADOL HCL [Concomitant]
  14. DOCUSATE (DOCUSATE) [Concomitant]

REACTIONS (5)
  - ANAEMIA [None]
  - ANOREXIA [None]
  - CHEST PAIN [None]
  - FATIGUE [None]
  - MULTIPLE MYELOMA [None]
